FAERS Safety Report 24110433 (Version 5)
Quarter: 2024Q4

REPORT INFORMATION
  Report Type: Report from Study
  Country: CA (occurrence: CA)
  Receive Date: 20240718
  Receipt Date: 20241025
  Transmission Date: 20250114
  Serious: Yes (Hospitalization, Other)
  Sender: GLAXOSMITHKLINE
  Company Number: CA-GLAXOSMITHKLINE-CA2023147198

PATIENT

DRUGS (4)
  1. MEPOLIZUMAB [Suspect]
     Active Substance: MEPOLIZUMAB
     Indication: Asthma
     Dosage: 100 MG, Q4W
     Route: 058
     Dates: start: 20210915
  2. MEPOLIZUMAB [Suspect]
     Active Substance: MEPOLIZUMAB
     Indication: Asthma
     Dosage: 100 MG, Q4W
     Route: 058
  3. SYMBICORT [Concomitant]
     Active Substance: BUDESONIDE\FORMOTEROL FUMARATE DIHYDRATE
     Indication: Product used for unknown indication
     Dosage: UNK
  4. VENTOLIN [Concomitant]
     Active Substance: ALBUTEROL SULFATE
     Indication: Product used for unknown indication
     Dosage: UNK

REACTIONS (18)
  - Mastitis [Not Recovered/Not Resolved]
  - Breast inflammation [Unknown]
  - Erythema [Unknown]
  - Pyrexia [Unknown]
  - Body temperature abnormal [Unknown]
  - Post-acute COVID-19 syndrome [Unknown]
  - Pneumonitis [Unknown]
  - Pneumonia [Unknown]
  - COVID-19 [Recovered/Resolved with Sequelae]
  - Chest discomfort [Unknown]
  - Cough [Unknown]
  - Dyspnoea exertional [Unknown]
  - Fatigue [Unknown]
  - Asthma [Unknown]
  - Fall [Unknown]
  - Contusion [Unknown]
  - Weight increased [Unknown]
  - Foot fracture [Unknown]

NARRATIVE: CASE EVENT DATE: 20230401
